FAERS Safety Report 25869313 (Version 1)
Quarter: 2025Q4

REPORT INFORMATION
  Report Type: Spontaneous
  Country: US (occurrence: US)
  Receive Date: 20251001
  Receipt Date: 20251001
  Transmission Date: 20260118
  Serious: No
  Sender: ELI LILLY AND COMPANY
  Company Number: US-ELI_LILLY_AND_COMPANY-US202509017444

PATIENT
  Age: 82 Year

DRUGS (6)
  1. KISUNLA [Suspect]
     Active Substance: DONANEMAB-AZBT
     Indication: Product used for unknown indication
     Dosage: UNK, UNKNOWN
     Route: 042
  2. KISUNLA [Suspect]
     Active Substance: DONANEMAB-AZBT
     Dosage: UNK, UNKNOWN (2ND INFUSION)
     Route: 042
     Dates: start: 20250613
  3. KISUNLA [Suspect]
     Active Substance: DONANEMAB-AZBT
     Dosage: UNK, UNKNOWN (3RD INFUSION)
     Route: 042
     Dates: start: 20250711
  4. KISUNLA [Suspect]
     Active Substance: DONANEMAB-AZBT
     Dosage: UNK, UNKNOWN (4TH INFUSION)
     Route: 042
     Dates: start: 20250808
  5. BENADRYL [Concomitant]
     Active Substance: DIPHENHYDRAMINE HYDROCHLORIDE
     Indication: Premedication
     Dosage: UNK
     Dates: start: 20250808
  6. TYLENOL [Concomitant]
     Active Substance: ACETAMINOPHEN
     Indication: Premedication
     Dosage: UNK
     Dates: start: 20250808

REACTIONS (13)
  - Feeling hot [Recovered/Resolved]
  - Anxiety [Recovered/Resolved]
  - Asthenia [Recovered/Resolved]
  - Sensory disturbance [Recovered/Resolved]
  - Tinnitus [Recovered/Resolved]
  - Defaecation urgency [Recovered/Resolved]
  - Pruritus [Recovered/Resolved]
  - Paraesthesia [Recovered/Resolved]
  - Dyskinesia [Recovered/Resolved]
  - Heart rate decreased [Recovered/Resolved]
  - Flushing [Recovered/Resolved]
  - Erythema [Recovered/Resolved]
  - Erythema [Recovered/Resolved]

NARRATIVE: CASE EVENT DATE: 20250613
